FAERS Safety Report 4703494-7 (Version None)
Quarter: 2005Q2

REPORT INFORMATION
  Report Type: 
  Country: None (occurrence: None)
  Receive Date: 20050628
  Receipt Date: 20050609
  Transmission Date: 20051028
  Serious: Yes (Hospitalization, Other)
  Sender: FDA-Public Use
  Company Number: USA050494809

PATIENT
  Age: 60 Year
  Sex: Female
  Weight: 59 kg

DRUGS (10)
  1. FORTEO [Suspect]
     Indication: OSTEOPOROSIS
     Dosage: 20 UG/1 DAY
     Dates: start: 20030321, end: 20050514
  2. PSEUDOEPHEDRINE HCL [Concomitant]
  3. LEVOXYL [Concomitant]
  4. LORTAB [Concomitant]
  5. XANAX (ALPRAZOLAM DUM) [Concomitant]
  6. ASCORBIC ACID [Concomitant]
  7. VITAMIN E [Concomitant]
  8. MULTI-VITAMIN [Concomitant]
  9. TUMS (CALCIUM CARBONATE) [Concomitant]
  10. BABY ASPIRIN (ACETYLSALICYIC ACID) [Concomitant]

REACTIONS (10)
  - CERVICAL VERTEBRAL FRACTURE [None]
  - DIZZINESS [None]
  - FACE INJURY [None]
  - FALL [None]
  - HEAD INJURY [None]
  - LOSS OF CONSCIOUSNESS [None]
  - MEDICAL DEVICE COMPLICATION [None]
  - PHARMACEUTICAL PRODUCT COMPLAINT [None]
  - TOOTH FRACTURE [None]
  - VESTIBULAR NEURONITIS [None]
